FAERS Safety Report 7734098-X (Version None)
Quarter: 2011Q3

REPORT INFORMATION
  Report Type: 
  Country: None (occurrence: None)
  Receive Date: 20110907
  Receipt Date: 20110829
  Transmission Date: 20111222
  Serious: Yes (Hospitalization)
  Sender: FDA-Public Use
  Company Number: GB-PFIZER INC-2011195976

PATIENT
  Age: 74 Year
  Sex: Male

DRUGS (7)
  1. ALISKIREN [Suspect]
     Dosage: UNK
     Route: 048
     Dates: start: 20080311, end: 20080411
  2. RAMIPRIL [Suspect]
     Indication: HYPERTENSION
     Dosage: UNK
     Dates: start: 20080311, end: 20080401
  3. AMLODIPINE [Concomitant]
     Dosage: UNK
     Dates: start: 20080212
  4. ZOCOR [Concomitant]
     Dosage: UNK
     Dates: start: 20071214
  5. ACETYLSALICYLIC ACID [Concomitant]
  6. CLOPIDOGREL [Concomitant]
  7. SERC [Concomitant]
     Dosage: UNK
     Dates: start: 19970519

REACTIONS (3)
  - HYPERTENSION [None]
  - ACUTE MYOCARDIAL INFARCTION [None]
  - DISEASE PROGRESSION [None]
